FAERS Safety Report 26172275 (Version 1)
Quarter: 2025Q4

REPORT INFORMATION
  Report Type: Spontaneous
  Country: EU (occurrence: EU)
  Receive Date: 20251218
  Receipt Date: 20251218
  Transmission Date: 20260118
  Serious: Yes (Other)
  Sender: CHEPLAPHARM
  Company Number: None

PATIENT
  Age: 60 Year
  Sex: Female
  Weight: 74 kg

DRUGS (27)
  1. VALGANCICLOVIR [Suspect]
     Active Substance: VALGANCICLOVIR
     Indication: Opportunistic infection prophylaxis
     Route: 042
     Dates: start: 20251013, end: 20251028
  2. VALGANCICLOVIR [Suspect]
     Active Substance: VALGANCICLOVIR
     Indication: Opportunistic infection prophylaxis
     Route: 048
     Dates: start: 20251028
  3. CEFOTAXIME SODIUM [Suspect]
     Active Substance: CEFOTAXIME SODIUM
     Indication: Gastroenteritis Escherichia coli
     Route: 042
     Dates: start: 20251014, end: 20251022
  4. PROGRAF [Suspect]
     Active Substance: TACROLIMUS
     Indication: Lung transplant
     Dosage: 5 MG/1 ML, SOLUTION FOR DILUTION FOR INFUSION
     Route: 042
     Dates: start: 20251007, end: 20251024
  5. TACROLIMUS [Suspect]
     Active Substance: TACROLIMUS
     Indication: Lung transplant
     Route: 048
     Dates: start: 20251024
  6. CELLCEPT [Suspect]
     Active Substance: MYCOPHENOLATE MOFETIL
     Indication: Lung transplant
     Route: 048
     Dates: start: 20251007
  7. RAMIPRIL [Suspect]
     Active Substance: RAMIPRIL
     Indication: Hypertension
     Route: 048
     Dates: start: 20251024
  8. Colistin aerosols [Concomitant]
     Dosage: 1 MILLION IU NEBULISED 1 0 1
  9. HYDROXYZINE [Concomitant]
     Active Substance: HYDROXYZINE HYDROCHLORIDE
     Dosage: 25 MG 1 0 1
  10. KARDEGIC [Concomitant]
     Active Substance: ASPIRIN DL-LYSINE
     Dosage: 160 MG 1 0 0?DAILY DOSE: 160 MILLIGRAM
  11. ATORVASTATIN [Concomitant]
     Active Substance: ATORVASTATIN
     Dosage: 10 MG 0 0 1?DAILY DOSE: 10 MILLIGRAM
  12. BECLOMETHASONE DIPROPIONATE\FORMOTEROL FUMARATE\GLYCOPYRROLATE [Concomitant]
     Active Substance: BECLOMETHASONE DIPROPIONATE\FORMOTEROL FUMARATE\GLYCOPYRROLATE
     Dosage: 87/5/9 2 PUFFS 1 0 1
  13. LANSOPRAZOLE [Concomitant]
     Active Substance: LANSOPRAZOLE
     Dosage: 15 MG 1 0 1
  14. TRIMEBUTINE [Concomitant]
     Active Substance: TRIMEBUTINE
     Dosage: 100 MG 2 2 2
  15. POLYSILANE [Concomitant]
     Dosage: 1 SACHET 1 0 1
  16. Mirtapizine [Concomitant]
     Dosage: 15 MG 0 0 1?DAILY DOSE: 15 MILLIGRAM
  17. MELATONIN [Concomitant]
     Active Substance: MELATONIN
     Dosage: 2 MG 0 0 1?DAILY DOSE: 2 MILLIGRAM
  18. GAVISCON [Concomitant]
     Active Substance: ALUMINUM HYDROXIDE\MAGNESIUM CARBONATE
     Dosage: 1 SACHET THREE TIMES DAILY
  19. CEFEPIME [Concomitant]
     Active Substance: CEFEPIME HYDROCHLORIDE
  20. METHYLPREDNISOLONE [Concomitant]
     Active Substance: METHYLPREDNISOLONE
     Indication: Immunosuppression
  21. TACROLIMUS [Concomitant]
     Active Substance: TACROLIMUS
     Indication: Immunosuppression
  22. SUFENTANIL [Concomitant]
     Active Substance: SUFENTANIL
     Indication: Sedation
  23. PROPOFOL [Concomitant]
     Active Substance: PROPOFOL
     Indication: Sedation
  24. IMMUNOGLOBULIN [Concomitant]
  25. LEVOFLOXACIN [Concomitant]
     Active Substance: LEVOFLOXACIN
  26. BACTRIM [Concomitant]
     Active Substance: SULFAMETHOXAZOLE\TRIMETHOPRIM
  27. MEROPENEM [Concomitant]
     Active Substance: MEROPENEM

REACTIONS (2)
  - Hepatocellular injury [Not Recovered/Not Resolved]
  - Cholestatic liver injury [Not Recovered/Not Resolved]

NARRATIVE: CASE EVENT DATE: 20251020
